FAERS Safety Report 24192914 (Version 1)
Quarter: 2024Q3

REPORT INFORMATION
  Report Type: Spontaneous
  Country: GB (occurrence: GB)
  Receive Date: 20240809
  Receipt Date: 20240809
  Transmission Date: 20241016
  Serious: Yes (Life-Threatening, Hospitalization, Other)
  Sender: GALDERMA
  Company Number: GB-MLMSERVICE-20240725-PI143532-00068-1

PATIENT

DRUGS (3)
  1. MIRVASO [Suspect]
     Active Substance: BRIMONIDINE TARTRATE
     Indication: Rosacea
     Dosage: 1 DOSAGE FORM, QD
     Route: 061
  2. LISINOPRIL [Concomitant]
     Active Substance: LISINOPRIL
     Indication: Hypertension
     Route: 065
  3. FLUCLOXACILLIN [Concomitant]
     Active Substance: FLUCLOXACILLIN
     Indication: Skin infection
     Route: 048

REACTIONS (8)
  - Syncope [Recovered/Resolved]
  - Atrioventricular block first degree [Recovered/Resolved]
  - Unresponsive to stimuli [Recovered/Resolved]
  - Sinus bradycardia [Recovered/Resolved]
  - Orthostatic hypotension [Recovered/Resolved]
  - Dizziness [Recovered/Resolved]
  - Somnolence [Recovered/Resolved]
  - Rosacea [Recovered/Resolved]
